FAERS Safety Report 9632881 (Version 1)
Quarter: 2013Q4

REPORT INFORMATION
  Report Type: Report from Study
  Country: US (occurrence: US)
  Receive Date: 20131018
  Receipt Date: 20131018
  Transmission Date: 20140711
  Serious: Yes (Hospitalization)
  Sender: FDA-Public Use
  Company Number: US-ABBVIE-13P-163-1157184-00

PATIENT
  Age: 63 Year
  Sex: Female
  Weight: 94.43 kg

DRUGS (15)
  1. HUMIRA [Suspect]
     Indication: PSORIATIC ARTHROPATHY
     Dates: start: 20110615, end: 201201
  2. METHOTREXATE [Concomitant]
     Indication: PSORIATIC ARTHROPATHY
     Dates: start: 201104, end: 201201
  3. VENTOLIN [Concomitant]
     Indication: CHRONIC OBSTRUCTIVE PULMONARY DISEASE
  4. ALBUTEROL [Concomitant]
     Indication: CHRONIC OBSTRUCTIVE PULMONARY DISEASE
  5. ADVAIR [Concomitant]
     Indication: CHRONIC OBSTRUCTIVE PULMONARY DISEASE
  6. DILTIAZEM [Concomitant]
     Indication: HYPERTENSION
  7. CLONIDINE HCL [Concomitant]
     Indication: HYPERTENSION
  8. DIOVAN [Concomitant]
     Indication: HYPERTENSION
  9. FUROSEMIDE [Concomitant]
     Indication: FLUID RETENTION
  10. ATORVASTATIN [Concomitant]
     Indication: BLOOD CHOLESTEROL INCREASED
  11. KLOR CON [Concomitant]
     Indication: HYPOKALAEMIA
  12. LORAZEPAM [Concomitant]
     Indication: ANXIETY
     Dosage: PRN
  13. LEVOTHYROXINE [Concomitant]
     Indication: HYPOTHYROIDISM
  14. LANTUS [Concomitant]
     Indication: DIABETES MELLITUS
  15. NOVOLOG [Concomitant]
     Indication: DIABETES MELLITUS

REACTIONS (8)
  - Chronic obstructive pulmonary disease [Recovered/Resolved]
  - Pyrexia [Recovered/Resolved]
  - Dyspnoea [Recovered/Resolved]
  - Loss of consciousness [Recovered/Resolved]
  - Diarrhoea [Recovered/Resolved]
  - Weight decreased [Not Recovered/Not Resolved]
  - Psoriasis [Not Recovered/Not Resolved]
  - Psoriasis [Not Recovered/Not Resolved]
